FAERS Safety Report 13102260 (Version 2)
Quarter: 2017Q1

REPORT INFORMATION
  Report Type: Spontaneous
  Country: US (occurrence: US)
  Receive Date: 20170110
  Receipt Date: 20170117
  Transmission Date: 20170428
  Serious: Yes (Other)
  Sender: FDA-Public Use
  Company Number: US-PFIZER INC-2017007040

PATIENT
  Age: 60 Year
  Sex: Female
  Weight: 88.89 kg

DRUGS (2)
  1. IBRANCE [Suspect]
     Active Substance: PALBOCICLIB
     Indication: BREAST CANCER METASTATIC
     Dosage: 125 MG, CYCLIC (DAYS 1-21 Q 28 DAYS)
     Route: 048
     Dates: start: 20161225
  2. FASLODEX [Suspect]
     Active Substance: FULVESTRANT
     Dosage: UNK

REACTIONS (10)
  - Constipation [Unknown]
  - Headache [Unknown]
  - Proctalgia [Unknown]
  - Photophobia [Unknown]
  - Arthralgia [Unknown]
  - Tenderness [Unknown]
  - Rectal haemorrhage [Unknown]
  - Haemorrhoids [Unknown]
  - Facial paralysis [Unknown]
  - Pain [Unknown]
